FAERS Safety Report 15101583 (Version 1)
Quarter: 2018Q3

REPORT INFORMATION
  Report Type: Spontaneous
  Country: US (occurrence: US)
  Receive Date: 20180703
  Receipt Date: 20180703
  Transmission Date: 20181010
  Serious: No
  Sender: FDA-Public Use
  Company Number: US-BAYER-2018-119779

PATIENT
  Age: 92 Year
  Sex: Female
  Weight: 54 kg

DRUGS (5)
  1. MILK OF MAGNESIA CHERRY [Suspect]
     Active Substance: MAGNESIUM HYDROXIDE
     Indication: NAUSEA
     Dosage: UNK
     Route: 048
  2. PAIN RELIEF NOS [Concomitant]
     Active Substance: CAMPHOR (SYNTHETIC)\LEVOMENTHOL\MENTHYL SALICYLATE OR CAMPHOR (SYNTHETIC)\MENTHOL\MENTHYL SALICYLATE OR MENTHOL\MENTHYL SALICYLATE
  3. MILK OF MAGNESIA ORIGINAL [Suspect]
     Active Substance: MAGNESIUM HYDROXIDE
     Dosage: UNK
     Route: 048
  4. ARTHRITIS [Concomitant]
     Active Substance: TROLAMINE SALICYLATE
  5. MIRALAX [Suspect]
     Active Substance: POLYETHYLENE GLYCOL 3350
     Indication: IRRITABLE BOWEL SYNDROME
     Dosage: 1 DF, UNK
     Route: 048

REACTIONS (8)
  - Nausea [Recovered/Resolved]
  - Incorrect dose administered [Unknown]
  - Product use issue [Unknown]
  - Drug ineffective [Unknown]
  - Limb discomfort [Not Recovered/Not Resolved]
  - Product use in unapproved indication [Unknown]
  - Off label use [Unknown]
  - Peripheral swelling [Not Recovered/Not Resolved]
